FAERS Safety Report 10793101 (Version 1)
Quarter: 2015Q1

REPORT INFORMATION
  Report Type: Spontaneous
  Country: GB (occurrence: GB)
  Receive Date: 20150213
  Receipt Date: 20150213
  Transmission Date: 20150721
  Serious: Yes (Hospitalization)
  Sender: FDA-Public Use
  Company Number: GB-WATSON-2015-01679

PATIENT
  Age: 41 Year
  Sex: Female
  Weight: 66 kg

DRUGS (1)
  1. PROGESTERONE (UNKNOWN) [Suspect]
     Active Substance: PROGESTERONE
     Indication: CONTRACEPTION
     Dosage: UNK
     Route: 058

REACTIONS (2)
  - Peripheral artery thrombosis [Not Recovered/Not Resolved]
  - Intestinal ischaemia [Unknown]
